FAERS Safety Report 12478309 (Version 1)
Quarter: 2016Q2

REPORT INFORMATION
  Report Type: Spontaneous
  Country: US (occurrence: US)
  Receive Date: 20160617
  Receipt Date: 20160617
  Transmission Date: 20160815
  Serious: No
  Sender: FDA-Public Use
  Company Number: US-ASTRAZENECA-2016SE61047

PATIENT
  Sex: Male

DRUGS (5)
  1. ADVAIR HFA [Concomitant]
     Active Substance: FLUTICASONE PROPIONATE\SALMETEROL XINAFOATE
     Indication: ASTHMA
     Dosage: 1 PUFF TWICW A DAY
     Route: 055
  2. ADVAIR HFA [Concomitant]
     Active Substance: FLUTICASONE PROPIONATE\SALMETEROL XINAFOATE
     Indication: CHRONIC OBSTRUCTIVE PULMONARY DISEASE
     Dosage: 1 PUFF TWICW A DAY
     Route: 055
  3. TUDORZA PRESSAIR [Suspect]
     Active Substance: ACLIDINIUM BROMIDE
     Indication: CHRONIC OBSTRUCTIVE PULMONARY DISEASE
     Dosage: 400MCG 1 PUFF TWICE A DAY
     Route: 055
     Dates: start: 2014
  4. TUDORZA PRESSAIR [Suspect]
     Active Substance: ACLIDINIUM BROMIDE
     Indication: ASTHMA
     Dosage: 400MCG 1 PUFF TWICE A DAY
     Route: 055
     Dates: start: 2014
  5. PROAIR INHALER [Concomitant]
     Indication: PROPHYLAXIS
     Dosage: 90, AS NEEDED IF IN AN AGGRAVATED SITUATION
     Route: 055

REACTIONS (4)
  - Physical product label issue [Unknown]
  - Product quality issue [Unknown]
  - Overdose [Unknown]
  - Dyspnoea [Unknown]
